FAERS Safety Report 15670339 (Version 2)
Quarter: 2018Q4

REPORT INFORMATION
  Report Type: Spontaneous
  Country: US (occurrence: US)
  Receive Date: 20181129
  Receipt Date: 20181220
  Transmission Date: 20190205
  Serious: Yes (Hospitalization, Disabling, Other)
  Sender: FDA-Public Use
  Company Number: US-ENDO PHARMACEUTICALS INC-2018-043186

PATIENT
  Age: 45 Year
  Sex: Male
  Weight: 100.68 kg

DRUGS (6)
  1. XIAFLEX [Suspect]
     Active Substance: COLLAGENASE CLOSTRIDIUM HISTOLYTICUM
     Dosage: 0.26, FIRST CYCLE, FIRST INJECTION
     Route: 026
     Dates: start: 20180730
  2. XIAFLEX [Suspect]
     Active Substance: COLLAGENASE CLOSTRIDIUM HISTOLYTICUM
     Dosage: 0.26, FIRST CYCLE, SECOND INJECTION
     Route: 026
     Dates: start: 20180731
  3. XIAFLEX [Suspect]
     Active Substance: COLLAGENASE CLOSTRIDIUM HISTOLYTICUM
     Indication: PEYRONIE^S DISEASE
     Dosage: 0.26, THIRD CYCLE, SECOND INJECTION
     Route: 026
     Dates: start: 20181120, end: 20181120
  4. XIAFLEX [Suspect]
     Active Substance: COLLAGENASE CLOSTRIDIUM HISTOLYTICUM
     Dosage: 0.26, THIRD CYCLE, FIRST INJECTION
     Route: 026
     Dates: start: 20181119
  5. XIAFLEX [Suspect]
     Active Substance: COLLAGENASE CLOSTRIDIUM HISTOLYTICUM
     Dosage: 0.26, SECOND CYCLE, SECOND INJECTION
     Route: 026
     Dates: start: 20181002
  6. XIAFLEX [Suspect]
     Active Substance: COLLAGENASE CLOSTRIDIUM HISTOLYTICUM
     Dosage: 0.26, SECOND CYCLE, FIRST INJECTION
     Route: 026
     Dates: start: 20181001

REACTIONS (3)
  - Fracture of penis [Recovering/Resolving]
  - Penile contusion [Recovered/Resolved]
  - Corpora cavernosa surgery [Recovered/Resolved]

NARRATIVE: CASE EVENT DATE: 20180731
